FAERS Safety Report 14889591 (Version 1)
Quarter: 2018Q2

REPORT INFORMATION
  Report Type: Report from Study
  Country: CN (occurrence: CN)
  Receive Date: 20180514
  Receipt Date: 20180514
  Transmission Date: 20180711
  Serious: Yes (Other)
  Sender: FDA-Public Use
  Company Number: CN-ROCHE-2105428

PATIENT
  Sex: Female

DRUGS (4)
  1. CARBOPLATIN. [Suspect]
     Active Substance: CARBOPLATIN
     Indication: MALIGNANT ASCITES
     Route: 065
  2. PACLITAXEL. [Suspect]
     Active Substance: PACLITAXEL
     Indication: MALIGNANT ASCITES
     Route: 065
  3. BEVACIZUMAB. [Suspect]
     Active Substance: BEVACIZUMAB
     Indication: MALIGNANT ASCITES
     Dosage: TOTAL COURSE OF 6 WEEKS
     Route: 033
  4. CISPLATIN. [Suspect]
     Active Substance: CISPLATIN
     Indication: MALIGNANT ASCITES
     Dosage: TOTAL COURSE OF 6 WEEKS
     Route: 033

REACTIONS (10)
  - Nausea [Unknown]
  - Vomiting [Unknown]
  - Proteinuria [Unknown]
  - Bone marrow failure [Unknown]
  - Fatigue [Unknown]
  - Off label use [Unknown]
  - Pyrexia [Unknown]
  - Blood pressure increased [Unknown]
  - Diarrhoea [Unknown]
  - Intentional product use issue [Unknown]
